FAERS Safety Report 23226473 (Version 1)
Quarter: 2023Q4

REPORT INFORMATION
  Report Type: Report from Study
  Country: US (occurrence: None)
  Receive Date: 20231124
  Receipt Date: 20231124
  Transmission Date: 20240110
  Serious: Yes (Life-Threatening, Other)
  Sender: FDA-Public Use
  Company Number: 2023A264863

PATIENT

DRUGS (3)
  1. FASENRA [Suspect]
     Active Substance: BENRALIZUMAB
     Route: 058
  2. ACYCLOVIR [Concomitant]
     Active Substance: ACYCLOVIR
     Indication: Antiviral prophylaxis
  3. PREDNISONE [Concomitant]
     Active Substance: PREDNISONE
     Indication: Antiviral prophylaxis

REACTIONS (10)
  - Suicidal ideation [Unknown]
  - Asthma [Unknown]
  - Chronic obstructive pulmonary disease [Unknown]
  - Asphyxia [Unknown]
  - Bronchitis chronic [Unknown]
  - Herpes zoster [Unknown]
  - Anxiety [Unknown]
  - Varicella [Unknown]
  - Condition aggravated [Unknown]
  - Fear [Unknown]
